FAERS Safety Report 4543311-1 (Version None)
Quarter: 2004Q4

REPORT INFORMATION
  Report Type: 
  Country: None (occurrence: None)
  Receive Date: 20041230
  Receipt Date: 20041230
  Transmission Date: 20050328
  Serious: Yes (Other)
  Sender: FDA-Public Use
  Company Number: None

PATIENT
  Age: 53 Year
  Sex: Male
  Weight: 74.84 kg

DRUGS (1)
  1. LITHIUM     300 MG [Suspect]
     Dosage: 300 MG     AMHS     ORAL
     Route: 048

REACTIONS (1)
  - SINUS BRADYCARDIA [None]
